FAERS Safety Report 4645399-6 (Version None)
Quarter: 2005Q2

REPORT INFORMATION
  Report Type: 
  Country: None (occurrence: None)
  Receive Date: 20050425
  Receipt Date: 20050418
  Transmission Date: 20051028
  Serious: Yes (Hospitalization)
  Sender: FDA-Public Use
  Company Number: 2005061589

PATIENT
  Age: 82 Year
  Sex: Female

DRUGS (10)
  1. TAHOR (ATORVASTATIN) [Suspect]
     Indication: HYPERLIPIDAEMIA
     Dosage: (1 IN 1 D), ORAL
     Route: 048
     Dates: end: 20050209
  2. ACETAMINOPHEN AND TRAMADOL HCL [Concomitant]
     Indication: ARTHROPATHY
     Dosage: (2 IN 1 D), ORAL
     Route: 048
     Dates: start: 20050206, end: 20050209
  3. DIGOXIN [Concomitant]
  4. LANSOPRAZOLE [Concomitant]
  5. PROPOFAN (CAFFEINE, CARBASALATE CALCIUM, CHLORPHENAMINE MALEATE, DEXTR [Concomitant]
  6. RAMIPRIL [Concomitant]
  7. FLUINDIONE (FLUINDIONE) [Concomitant]
  8. LEVOTHYROXINE SODIUM [Concomitant]
  9. LORAZEPAM [Concomitant]
  10. TETRAZEPAM (TETRAZEPAM) [Concomitant]

REACTIONS (5)
  - ATRIAL FIBRILLATION [None]
  - MALAISE [None]
  - NAUSEA [None]
  - SYNCOPE [None]
  - VERTIGO [None]
